FAERS Safety Report 14404772 (Version 3)
Quarter: 2018Q1

REPORT INFORMATION
  Report Type: Spontaneous
  Country: NO (occurrence: NO)
  Receive Date: 20180118
  Receipt Date: 20180316
  Transmission Date: 20180509
  Serious: Yes (Hospitalization, Other)
  Sender: FDA-Public Use
  Company Number: NO-009507513-1801NOR004909

PATIENT
  Age: 59 Year
  Sex: Male
  Weight: 85 kg

DRUGS (2)
  1. INEGY [Suspect]
     Active Substance: EZETIMIBE\SIMVASTATIN
     Indication: BLOOD CHOLESTEROL INCREASED
     Dosage: UNK
     Route: 048
     Dates: start: 20171210, end: 20171211
  2. CARVEDILOL. [Concomitant]
     Active Substance: CARVEDILOL
     Dosage: 6.25 MG 2 TIMES DAILY
     Route: 048

REACTIONS (9)
  - Memory impairment [Unknown]
  - White blood cell count increased [Unknown]
  - Disturbance in attention [Unknown]
  - Fibrin D dimer increased [Unknown]
  - Agitation [Recovered/Resolved]
  - Seizure [Unknown]
  - Poor quality sleep [Unknown]
  - Confusional state [Recovered/Resolved]
  - Pyrexia [Unknown]

NARRATIVE: CASE EVENT DATE: 201712
